FAERS Safety Report 9779246 (Version 1)
Quarter: 2013Q4

REPORT INFORMATION
  Report Type: Spontaneous
  Country: IT (occurrence: IT)
  Receive Date: 20131223
  Receipt Date: 20131223
  Transmission Date: 20140711
  Serious: Yes (Hospitalization)
  Sender: FDA-Public Use
  Company Number: IT-ASTRAZENECA-2013SE92575

PATIENT
  Age: 33369 Day
  Sex: Male

DRUGS (2)
  1. CASODEX [Suspect]
     Indication: PROSTATE CANCER
     Route: 048
     Dates: end: 20131127
  2. CARDIRENE [Suspect]
     Route: 048
     Dates: end: 20131127

REACTIONS (2)
  - Haemorrhagic erosive gastritis [Recovering/Resolving]
  - Anaemia [Recovering/Resolving]
